FAERS Safety Report 9223389 (Version 1)
Quarter: 2013Q2

REPORT INFORMATION
  Report Type: Report from Study
  Country: GB (occurrence: GB)
  Receive Date: 20130410
  Receipt Date: 20130410
  Transmission Date: 20140414
  Serious: Yes (Other)
  Sender: FDA-Public Use
  Company Number: GB-ROCHE-1209479

PATIENT
  Sex: 0

DRUGS (5)
  1. BEVACIZUMAB [Suspect]
     Indication: COLORECTAL CANCER METASTATIC
     Route: 042
  2. OXALIPLATIN [Suspect]
     Indication: COLORECTAL CANCER METASTATIC
     Dosage: ON DAY 1, OVER 2 HOURS
     Route: 042
  3. LEUCOVORIN [Suspect]
     Indication: COLORECTAL CANCER METASTATIC
     Dosage: ON DAY 1, OVER 2 HOURS
     Route: 042
  4. 5-FU [Suspect]
     Indication: COLORECTAL CANCER METASTATIC
     Dosage: ON DAY 1
     Route: 040
  5. 5-FU [Suspect]
     Dosage: ON DAY 1
     Route: 042

REACTIONS (15)
  - Diarrhoea [Unknown]
  - Fatigue [Unknown]
  - Hypertension [Unknown]
  - Neutropenia [Unknown]
  - Decreased appetite [Unknown]
  - Stomatitis [Unknown]
  - Paraesthesia [Unknown]
  - Vomiting [Unknown]
  - Peripheral sensory neuropathy [Unknown]
  - Abdominal pain [Unknown]
  - Asthenia [Unknown]
  - Proteinuria [Unknown]
  - Pulmonary embolism [Unknown]
  - Hypokalaemia [Unknown]
  - Dehydration [Unknown]
